FAERS Safety Report 16072985 (Version 1)
Quarter: 2019Q1

REPORT INFORMATION
  Report Type: Spontaneous
  Country: US (occurrence: US)
  Receive Date: 20190314
  Receipt Date: 20190314
  Transmission Date: 20190418
  Serious: No
  Sender: FDA-Public Use
  Company Number: US-BEH-2019100398

PATIENT
  Age: 55 Year
  Sex: Female

DRUGS (14)
  1. SULFAZINE [Concomitant]
     Active Substance: SULFASALAZINE
  2. FLONASE [Concomitant]
     Active Substance: FLUTICASONE PROPIONATE
  3. FOSAMAX [Concomitant]
     Active Substance: ALENDRONATE SODIUM
  4. OMEPRAZOLE. [Concomitant]
     Active Substance: OMEPRAZOLE
  5. GABAPENTIN. [Concomitant]
     Active Substance: GABAPENTIN
  6. LYRICA [Concomitant]
     Active Substance: PREGABALIN
  7. METHOTREXATE. [Concomitant]
     Active Substance: METHOTREXATE
  8. PREDNISONE. [Concomitant]
     Active Substance: PREDNISONE
  9. PRIVIGEN [Suspect]
     Active Substance: HUMAN IMMUNOGLOBULIN G
     Indication: CHRONIC INFLAMMATORY DEMYELINATING POLYRADICULONEUROPATHY
     Dosage: 45 G (20G DAY1, 25G DAY2), QMT
     Route: 042
     Dates: start: 201702
  10. CALCIUM [Concomitant]
     Active Substance: CALCIUM
  11. SIMVASTATIN. [Concomitant]
     Active Substance: SIMVASTATIN
  12. VITAMIN D                          /00107901/ [Concomitant]
     Active Substance: ERGOCALCIFEROL
  13. ACETAMINOPHEN. [Concomitant]
     Active Substance: ACETAMINOPHEN
  14. HYDROXYCHLOROQUINE SULFATE. [Concomitant]
     Active Substance: HYDROXYCHLOROQUINE SULFATE

REACTIONS (7)
  - Arthralgia [Unknown]
  - Arthritis [Unknown]
  - Diarrhoea [Unknown]
  - Migraine [Unknown]
  - Nausea [Unknown]
  - Diarrhoea [Unknown]
  - Paraesthesia [Unknown]

NARRATIVE: CASE EVENT DATE: 20190312
